FAERS Safety Report 24986472 (Version 1)
Quarter: 2025Q1

REPORT INFORMATION
  Report Type: Spontaneous
  Country: FR (occurrence: FR)
  Receive Date: 20250219
  Receipt Date: 20250219
  Transmission Date: 20250409
  Serious: Yes (Other)
  Sender: PFIZER
  Company Number: FR-ROCHE-10000196526

PATIENT
  Age: 52 Year
  Sex: Male
  Weight: 74.5 kg

DRUGS (53)
  1. DOXORUBICIN HYDROCHLORIDE [Suspect]
     Active Substance: DOXORUBICIN HYDROCHLORIDE
     Indication: Diffuse large B-cell lymphoma
     Dosage: DOSE LAST STUDY DRUG ADMIN PRIOR AE IS 100 MG, DOSE LAST STUDY DRUG ADMIN PRIOR SAE IS 92.60 MG
     Route: 042
     Dates: start: 20240628
  2. RITUXIMAB [Suspect]
     Active Substance: RITUXIMAB
     Indication: Diffuse large B-cell lymphoma
     Dosage: DOSE LAST STUDY DRUG ADMIN PRIOR AE IS 694 MG
     Route: 042
     Dates: start: 20240627
  3. POLATUZUMAB VEDOTIN [Suspect]
     Active Substance: POLATUZUMAB VEDOTIN
     Indication: Diffuse large B-cell lymphoma
     Dosage: DOSE LAST STUDY DRUG ADMIN PRIOR AE IS 130 MG
     Route: 042
     Dates: start: 20240627
  4. CYCLOPHOSPHAMIDE [Suspect]
     Active Substance: CYCLOPHOSPHAMIDE
     Indication: Diffuse large B-cell lymphoma
     Dosage: DOSE LAST STUDY DRUG ADMIN PRIOR AE IS 1388 MG
     Route: 042
     Dates: start: 20240628
  5. PREDNISONE [Suspect]
     Active Substance: PREDNISONE
     Indication: Diffuse large B-cell lymphoma
     Dosage: DOSE LAST STUDY DRUG ADMIN PRIOR AE IS 100 MG
     Route: 048
     Dates: start: 20240627
  6. INDAPAMIDE\PERINDOPRIL [Concomitant]
     Active Substance: INDAPAMIDE\PERINDOPRIL
     Indication: Hypertension
     Dosage: 1.88 MG, 1X/DAY
     Route: 048
     Dates: end: 20241128
  7. LERCANIDIPINE HYDROCHLORIDE [Concomitant]
     Active Substance: LERCANIDIPINE HYDROCHLORIDE
     Indication: Hypertension
     Dosage: 10 MG, 1X/DAY
     Route: 048
     Dates: end: 20241128
  8. PRAVASTATIN [Concomitant]
     Active Substance: PRAVASTATIN
     Indication: Dyslipidaemia
     Dosage: 10 MG, 1X/DAY
     Route: 048
  9. BACTRIM [Concomitant]
     Active Substance: SULFAMETHOXAZOLE\TRIMETHOPRIM
     Indication: Infection prophylaxis
     Route: 048
     Dates: start: 20240627
  10. LEUCOVORIN CALCIUM [Concomitant]
     Active Substance: LEUCOVORIN CALCIUM
     Indication: Bone marrow failure
     Dosage: GIVEN FOR PROPHYLAXIS IS YES
     Route: 048
     Dates: start: 20240627
  11. VALACYCLOVIR HYDROCHLORIDE [Concomitant]
     Active Substance: VALACYCLOVIR HYDROCHLORIDE
     Indication: Antiviral prophylaxis
     Route: 048
     Dates: start: 20240627
  12. PRIMPERAN [Concomitant]
     Active Substance: METOCLOPRAMIDE HYDROCHLORIDE
     Indication: Nausea
     Route: 048
     Dates: start: 20240627, end: 20250114
  13. FILGRASTIM [Concomitant]
     Active Substance: FILGRASTIM
     Dosage: GIVEN FOR PROPHYLAXIS IS YES
     Route: 058
     Dates: start: 20240724, end: 20240728
  14. FILGRASTIM [Concomitant]
     Active Substance: FILGRASTIM
     Dosage: GIVEN FOR PROPHYLAXIS IS YES
     Route: 058
     Dates: start: 20240813, end: 20240817
  15. FILGRASTIM [Concomitant]
     Active Substance: FILGRASTIM
     Dosage: GIVEN FOR PROPHYLAXIS IS YES
     Route: 058
     Dates: start: 20240903, end: 20240907
  16. FILGRASTIM [Concomitant]
     Active Substance: FILGRASTIM
     Dosage: GIVEN FOR PROPHYLAXIS IS YES
     Route: 058
     Dates: start: 20240924, end: 20240928
  17. FILGRASTIM [Concomitant]
     Active Substance: FILGRASTIM
     Dosage: GIVEN FOR PROPHYLAXIS IS YES
     Route: 058
     Dates: start: 20241015, end: 20241019
  18. ACETAMINOPHEN [Concomitant]
     Active Substance: ACETAMINOPHEN
     Indication: Premedication
     Dosage: 1 G, 1X/DAY
     Route: 048
     Dates: start: 20240719, end: 20240719
  19. ACETAMINOPHEN [Concomitant]
     Active Substance: ACETAMINOPHEN
     Dosage: 1 G, 1X/DAY
     Route: 042
     Dates: start: 20240808, end: 20240808
  20. ACETAMINOPHEN [Concomitant]
     Active Substance: ACETAMINOPHEN
     Dosage: 1 G, 1X/DAY
     Route: 048
     Dates: start: 20241106, end: 20241106
  21. ACETAMINOPHEN [Concomitant]
     Active Substance: ACETAMINOPHEN
     Dosage: 1 G, 1X/DAY
     Route: 048
     Dates: start: 20241128, end: 20241128
  22. ACETAMINOPHEN [Concomitant]
     Active Substance: ACETAMINOPHEN
     Dosage: 1 G, 1X/DAY
     Route: 042
     Dates: start: 20240829, end: 20240829
  23. ACETAMINOPHEN [Concomitant]
     Active Substance: ACETAMINOPHEN
     Dosage: 1 G, 1X/DAY
     Route: 042
     Dates: start: 20240919, end: 20240919
  24. ACETAMINOPHEN [Concomitant]
     Active Substance: ACETAMINOPHEN
     Dosage: 1 G, 1X/DAY
     Route: 042
     Dates: start: 20241010, end: 20241010
  25. DEXCHLORPHENIRAMINE [Concomitant]
     Active Substance: DEXCHLORPHENIRAMINE
     Indication: Premedication
     Dosage: 5 MG, 1X/DAY
     Route: 042
     Dates: start: 20240719, end: 20240719
  26. DEXCHLORPHENIRAMINE [Concomitant]
     Active Substance: DEXCHLORPHENIRAMINE
     Dosage: 5 MG, 1X/DAY
     Route: 048
     Dates: start: 20241106, end: 20241106
  27. DEXCHLORPHENIRAMINE [Concomitant]
     Active Substance: DEXCHLORPHENIRAMINE
     Dosage: 5 MG, 1X/DAY
     Route: 042
     Dates: start: 20240829, end: 20240829
  28. DEXCHLORPHENIRAMINE [Concomitant]
     Active Substance: DEXCHLORPHENIRAMINE
     Dosage: 5 MG, 1X/DAY
     Route: 042
     Dates: start: 20240919, end: 20240919
  29. DEXCHLORPHENIRAMINE [Concomitant]
     Active Substance: DEXCHLORPHENIRAMINE
     Dosage: 5 MG, 1X/DAY
     Route: 042
     Dates: start: 20241010, end: 20241010
  30. DEXCHLORPHENIRAMINE [Concomitant]
     Active Substance: DEXCHLORPHENIRAMINE
     Dosage: 5 MG, 1X/DAY
     Route: 048
     Dates: start: 20241128, end: 20241128
  31. MESNA [Concomitant]
     Active Substance: MESNA
     Indication: Urinary tract disorder prophylaxis
     Dosage: GIVEN FOR PROPHYLAXIS IS YES
     Route: 042
     Dates: start: 20240719, end: 20240719
  32. MESNA [Concomitant]
     Active Substance: MESNA
     Dosage: GIVEN FOR PROPHYLAXIS IS YES
     Route: 048
     Dates: start: 20240719, end: 20240719
  33. MESNA [Concomitant]
     Active Substance: MESNA
     Route: 048
     Dates: start: 20240808, end: 20240808
  34. MESNA [Concomitant]
     Active Substance: MESNA
     Dosage: GIVEN FOR PROPHYLAXIS IS YES
     Route: 042
     Dates: start: 20240808, end: 20240808
  35. MESNA [Concomitant]
     Active Substance: MESNA
     Dosage: GIVEN FOR PROPHYLAXIS IS YES
     Route: 042
     Dates: start: 20240919, end: 20240919
  36. MESNA [Concomitant]
     Active Substance: MESNA
     Route: 048
     Dates: start: 20240919, end: 20240919
  37. MESNA [Concomitant]
     Active Substance: MESNA
     Dosage: GIVEN FOR PROPHYLAXIS IS YES
     Route: 048
     Dates: start: 20240829, end: 20240829
  38. MESNA [Concomitant]
     Active Substance: MESNA
     Route: 048
     Dates: start: 20241010, end: 20241010
  39. MESNA [Concomitant]
     Active Substance: MESNA
     Dosage: GIVEN FOR PROPHYLAXIS IS YES
     Route: 042
     Dates: start: 20240829, end: 20240829
  40. MESNA [Concomitant]
     Active Substance: MESNA
     Dosage: GIVEN FOR PROPHYLAXIS IS YES
     Route: 042
     Dates: start: 20241010, end: 20241010
  41. APREPITANT [Concomitant]
     Active Substance: APREPITANT
     Indication: Nausea
     Dosage: GIVEN FOR PROPHYLAXIS IS YES
     Route: 048
     Dates: start: 20240808, end: 20240808
  42. APREPITANT [Concomitant]
     Active Substance: APREPITANT
     Dosage: GIVEN FOR PROPHYLAXIS IS YES
     Route: 048
     Dates: start: 20240829, end: 20240829
  43. APREPITANT [Concomitant]
     Active Substance: APREPITANT
     Dosage: GIVEN FOR PROPHYLAXIS IS YES
     Route: 048
     Dates: start: 20240919, end: 20240919
  44. APREPITANT [Concomitant]
     Active Substance: APREPITANT
     Dosage: GIVEN FOR PROPHYLAXIS IS YES
     Route: 048
     Dates: start: 20241010, end: 20241010
  45. ONDANSETRON [Concomitant]
     Active Substance: ONDANSETRON
     Indication: Nausea
     Dosage: GIVEN FOR PROPHYLAXIS IS YES
     Route: 042
     Dates: start: 20240808, end: 20240808
  46. ONDANSETRON [Concomitant]
     Active Substance: ONDANSETRON
     Dosage: GIVEN FOR PROPHYLAXIS IS YES
     Route: 042
     Dates: start: 20240829, end: 20240829
  47. ONDANSETRON [Concomitant]
     Active Substance: ONDANSETRON
     Dosage: GIVEN FOR PROPHYLAXIS IS YES
     Route: 042
     Dates: start: 20240919, end: 20240919
  48. ONDANSETRON [Concomitant]
     Active Substance: ONDANSETRON
     Dosage: GIVEN FOR PROPHYLAXIS IS YES
     Route: 042
     Dates: start: 20241010, end: 20241010
  49. POLARAMINE [Concomitant]
     Active Substance: DEXCHLORPHENIRAMINE MALEATE
     Indication: Premedication
     Dosage: 5 MG, 1X/DAY
     Route: 042
     Dates: start: 20240808, end: 20240808
  50. INNOHEP [Concomitant]
     Active Substance: TINZAPARIN SODIUM
     Indication: Splenic thrombosis
     Route: 058
     Dates: start: 2024, end: 20240923
  51. ELIQUIS [Concomitant]
     Active Substance: APIXABAN
     Indication: Embolism
     Route: 048
     Dates: start: 20240930
  52. PREDNISONE [Concomitant]
     Active Substance: PREDNISONE
     Indication: Premedication
     Dosage: 100 MG, 1X/DAY
     Route: 048
     Dates: start: 20241106, end: 20241106
  53. PREDNISONE [Concomitant]
     Active Substance: PREDNISONE
     Dosage: 100 MG, 1X/DAY
     Route: 048
     Dates: start: 20241128, end: 20241128

REACTIONS (1)
  - Neuropathy peripheral [Not Recovered/Not Resolved]

NARRATIVE: CASE EVENT DATE: 20240808
